FAERS Safety Report 12119475 (Version 1)
Quarter: 2016Q1

REPORT INFORMATION
  Report Type: Spontaneous
  Country: FR (occurrence: FR)
  Receive Date: 20160226
  Receipt Date: 20160226
  Transmission Date: 20160526
  Serious: Yes (Hospitalization)
  Sender: FDA-Public Use
  Company Number: FR-IROKO PHARMACEUTICALS LLC-FR-I09001-16-00032

PATIENT
  Age: 48 Year
  Sex: Male

DRUGS (3)
  1. NONSTEROIDAL ANTI-INFLAMMATORY DRUGS [Concomitant]
     Active Substance: UNSPECIFIED INGREDIENT
     Indication: PRODUCT USED FOR UNKNOWN INDICATION
     Route: 065
  2. CORTANCYL 10 [Concomitant]
     Indication: ARTHROPATHY
     Route: 065
  3. INDOCIN [Suspect]
     Active Substance: INDOMETHACIN\INDOMETHACIN SODIUM
     Indication: ARTHROPATHY
     Route: 048
     Dates: start: 20151207, end: 20151224

REACTIONS (5)
  - Superior vena cava syndrome [Unknown]
  - Localised oedema [Recovered/Resolved]
  - Pruritus [Unknown]
  - Folliculitis [Recovering/Resolving]
  - Face oedema [Recovered/Resolved]

NARRATIVE: CASE EVENT DATE: 201512
